FAERS Safety Report 4381699-5 (Version None)
Quarter: 2004Q2

REPORT INFORMATION
  Report Type: 
  Country: None (occurrence: None)
  Receive Date: 20040615
  Receipt Date: 20040422
  Transmission Date: 20050107
  Serious: Yes (Hospitalization)
  Sender: FDA-Public Use
  Company Number: 2001070462SE

PATIENT
  Age: 71 Year
  Sex: Male

DRUGS (9)
  1. CAMPTOSAR [Suspect]
     Indication: COLORECTAL CANCER
     Dosage: 360 MG, IV
     Route: 042
     Dates: start: 20010718, end: 20010718
  2. CAMPTOSAR [Suspect]
     Indication: COLORECTAL CANCER
     Dosage: 360 MG, IV
     Route: 042
     Dates: start: 20010719, end: 20010719
  3. CAMPTOSAR [Suspect]
     Indication: COLORECTAL CANCER
     Dosage: 360 MG, IV
     Route: 042
     Dates: start: 20010808, end: 20010808
  4. FLUOROURACIL [Suspect]
     Indication: COLORECTAL CANCER
     Dosage: SEE IMAGE
     Route: 040
     Dates: start: 20010718, end: 20010718
  5. FLUOROURACIL [Suspect]
     Indication: COLORECTAL CANCER
     Dosage: SEE IMAGE
     Route: 040
     Dates: start: 20010719, end: 20010719
  6. FLUOROURACIL [Suspect]
     Indication: COLORECTAL CANCER
     Dosage: SEE IMAGE
     Route: 040
     Dates: start: 20010808, end: 20010810
  7. FOLINIC ACID (FOLINIC ACID) [Suspect]
     Indication: COLORECTAL CANCER
     Dosage: 400 MG, IV
     Route: 042
     Dates: start: 20010718, end: 20010719
  8. LANSOPRAZOLE [Concomitant]
  9. LACTULOSE [Concomitant]

REACTIONS (11)
  - BLOOD ALKALINE PHOSPHATASE INCREASED [None]
  - BLOOD LACTATE DEHYDROGENASE INCREASED [None]
  - CONSTIPATION [None]
  - FEELING ABNORMAL [None]
  - FLUSHING [None]
  - GASTROOESOPHAGEAL REFLUX DISEASE [None]
  - HEART RATE DECREASED [None]
  - PULMONARY EMBOLISM [None]
  - SYNCOPE [None]
  - THROMBOPHLEBITIS [None]
  - THROMBOSIS [None]
